FAERS Safety Report 9685270 (Version 2)
Quarter: 2013Q4

REPORT INFORMATION
  Report Type: Spontaneous
  Country: US (occurrence: US)
  Receive Date: 20131113
  Receipt Date: 20131231
  Transmission Date: 20140711
  Serious: Yes (Disabling, Other)
  Sender: FDA-Public Use
  Company Number: US-JNJFOC-20131102632

PATIENT
  Age: 46 Year
  Sex: Female
  Weight: 89.36 kg

DRUGS (2)
  1. INVOKANA [Suspect]
     Indication: PRODUCT USED FOR UNKNOWN INDICATION
     Route: 048
     Dates: start: 20130815, end: 20130822
  2. JENTADUETO [Concomitant]

REACTIONS (6)
  - Haemoptysis [Unknown]
  - Epistaxis [Unknown]
  - Pharyngeal haemorrhage [Unknown]
  - Rhinorrhoea [Unknown]
  - Dyspnoea [Unknown]
  - Cough [Unknown]
